FAERS Safety Report 8313139 (Version 3)
Quarter: 2016Q3

REPORT INFORMATION
  Report Type: Spontaneous
  Country: GB (occurrence: GB)
  Receive Date: 20111228
  Receipt Date: 20160824
  Transmission Date: 20161109
  Serious: Yes (Congenital Anomaly, Other)
  Sender: FDA-Public Use
  Company Number: GB-BRISTOL-MYERS SQUIBB COMPANY-16308777

PATIENT
  Sex: Male
  Weight: .74 kg

DRUGS (1)
  1. METFORMIN HYDROCHLORIDE. [Suspect]
     Active Substance: METFORMIN HYDROCHLORIDE
     Indication: PRODUCT USED FOR UNKNOWN INDICATION
     Dosage: UNK
     Route: 064

REACTIONS (5)
  - Vitello-intestinal duct remnant [Unknown]
  - Staphylococcal sepsis [Unknown]
  - Foetal exposure during pregnancy [Unknown]
  - Pneumoperitoneum [Unknown]
  - Premature baby [Unknown]
